FAERS Safety Report 18616779 (Version 1)
Quarter: 2020Q4

REPORT INFORMATION
  Report Type: Spontaneous
  Country: US (occurrence: US)
  Receive Date: 20201215
  Receipt Date: 20201215
  Transmission Date: 20210114
  Serious: No
  Sender: FDA-Public Use
  Company Number: US-SA-2020SA356439

PATIENT

DRUGS (5)
  1. SOLIQUA 100/33 [Suspect]
     Active Substance: INSULIN GLARGINE\LIXISENATIDE
     Dosage: 23 IU, QD
  2. SOLIQUA 100/33 [Suspect]
     Active Substance: INSULIN GLARGINE\LIXISENATIDE
     Indication: TYPE 2 DIABETES MELLITUS
     Dosage: 15 IU, QD
     Dates: start: 20200811
  3. SOLIQUA 100/33 [Suspect]
     Active Substance: INSULIN GLARGINE\LIXISENATIDE
     Dosage: 21 IU, QD
  4. TRIBECO [Concomitant]
     Dosage: UNK
  5. JARDIANCE [Concomitant]
     Active Substance: EMPAGLIFLOZIN
     Dosage: UNK

REACTIONS (7)
  - Weight decreased [Not Recovered/Not Resolved]
  - Palpitations [Unknown]
  - Intentional product use issue [Unknown]
  - Blood glucose increased [Unknown]
  - Glycosylated haemoglobin increased [Not Recovered/Not Resolved]
  - Diarrhoea [Unknown]
  - Intestinal resection [Unknown]

NARRATIVE: CASE EVENT DATE: 2020
